FAERS Safety Report 16248930 (Version 1)
Quarter: 2019Q2

REPORT INFORMATION
  Report Type: Spontaneous
  Country: US (occurrence: US)
  Receive Date: 20190325
  Receipt Date: 20190325
  Transmission Date: 20190711
  Serious: Yes (Hospitalization)
  Sender: FDA-Public Use
  Company Number: None

PATIENT
  Age: 66 Year
  Sex: Female

DRUGS (2)
  1. ADCIRCA [Concomitant]
     Active Substance: TADALAFIL
  2. TADALAFIL  20MG TAB [Suspect]
     Active Substance: TADALAFIL
     Route: 048
     Dates: start: 20190104

REACTIONS (1)
  - Fluid retention [None]

NARRATIVE: CASE EVENT DATE: 20190323
